FAERS Safety Report 10242045 (Version 2)
Quarter: 2014Q2

REPORT INFORMATION
  Report Type: Spontaneous
  Country: GB (occurrence: GB)
  Receive Date: 20140617
  Receipt Date: 20140617
  Transmission Date: 20141212
  Serious: Yes (Life-Threatening, Other)
  Sender: FDA-Public Use
  Company Number: GXKR2003GB02767

PATIENT
  Age: 74 Year
  Sex: Male

DRUGS (9)
  1. TIMOLOL [Suspect]
     Dosage: 1 DF, BID
     Route: 061
  2. ATENOLOL [Suspect]
     Indication: MYOCARDIAL INFARCTION
     Dosage: 25 MG, UNK
     Route: 048
     Dates: end: 20031125
  3. DILTIAZEM [Suspect]
     Indication: HYPERTENSION
     Dosage: 200 MG, UNK
     Route: 048
     Dates: start: 20031125, end: 20031125
  4. ASPIRIN [Concomitant]
     Dosage: 75 MG, QD
     Route: 048
  5. IRBESARTAN [Concomitant]
     Indication: MYOCARDIAL INFARCTION
     Dosage: 150 MG, QD
     Route: 048
  6. IRBESARTAN [Concomitant]
     Indication: BLOOD PRESSURE DECREASED
     Dosage: 150 MG, QD
     Route: 048
  7. SIMVASTATIN [Concomitant]
     Indication: MYOCARDIAL INFARCTION
     Dosage: 40 MG, QD
     Route: 048
  8. HUMAN MIXTARD [Concomitant]
     Route: 058
  9. BRIMODINE [Concomitant]
     Indication: GLAUCOMA
     Route: 047

REACTIONS (1)
  - Bradycardia [Unknown]
